FAERS Safety Report 17686407 (Version 3)
Quarter: 2020Q3

REPORT INFORMATION
  Report Type: Report from Study
  Country: US (occurrence: US)
  Receive Date: 20200420
  Receipt Date: 20200707
  Transmission Date: 20201102
  Serious: Yes (Hospitalization, Other)
  Sender: FDA-Public Use
  Company Number: US-AGIOS-2003US01781

PATIENT

DRUGS (3)
  1. TIBSOVO [Suspect]
     Active Substance: IVOSIDENIB
     Indication: ACUTE MYELOID LEUKAEMIA
     Dosage: 250 MILLIGRAM, 2 TABLETS (500 MG) DAILY
     Route: 048
     Dates: start: 20200310
  2. TIBSOVO [Suspect]
     Active Substance: IVOSIDENIB
     Indication: ACUTE MYELOID LEUKAEMIA
     Dosage: 250 MILLIGRAM, 2 TABLETS (500 MG) DAILY
     Route: 048
     Dates: start: 20200311
  3. ANTIFUNGAL                         /00101201/ [Concomitant]
     Indication: PRODUCT USED FOR UNKNOWN INDICATION

REACTIONS (10)
  - Epistaxis [Recovered/Resolved]
  - Tooth infection [Unknown]
  - Platelet count decreased [Unknown]
  - Epistaxis [Unknown]
  - Asthenia [Unknown]
  - Blood count abnormal [Unknown]
  - Epistaxis [Recovered/Resolved]
  - Drug ineffective [Unknown]
  - Eye disorder [Unknown]
  - Decreased activity [Unknown]

NARRATIVE: CASE EVENT DATE: 20200401
